FAERS Safety Report 13881697 (Version 1)
Quarter: 2017Q3

REPORT INFORMATION
  Report Type: Spontaneous
  Country: PT (occurrence: PT)
  Receive Date: 20170818
  Receipt Date: 20170818
  Transmission Date: 20171127
  Serious: Yes (Other)
  Sender: FDA-Public Use
  Company Number: PT-MYLANLABS-2017M1048517

PATIENT

DRUGS (2)
  1. CLOZAPINE. [Suspect]
     Active Substance: CLOZAPINE
     Dosage: 250 MG, QD
  2. CLOZAPINE. [Suspect]
     Active Substance: CLOZAPINE
     Indication: SCHIZOPHRENIA
     Dosage: UNK

REACTIONS (8)
  - Lymphopenia [Unknown]
  - C-reactive protein increased [Recovering/Resolving]
  - Systolic dysfunction [Unknown]
  - Pyrexia [Recovered/Resolved]
  - Procalcitonin increased [Recovered/Resolved]
  - Hypokinesia [Unknown]
  - Left ventricular dilatation [Unknown]
  - Myocarditis [Recovered/Resolved]
